FAERS Safety Report 25947692 (Version 1)
Quarter: 2025Q4

REPORT INFORMATION
  Report Type: Spontaneous
  Country: US (occurrence: None)
  Receive Date: 20251021
  Receipt Date: 20251021
  Transmission Date: 20260118
  Serious: Yes (Other)
  Sender: FDA-CTU
  Company Number: None

PATIENT
  Sex: Female

DRUGS (1)
  1. NUCALA [Suspect]
     Active Substance: MEPOLIZUMAB
     Indication: Asthma
     Dosage: OTHER QUANTITY : 1 PEN (100 MG);?FREQUENCY : MONTHLY;?
     Route: 058
     Dates: start: 20250903

REACTIONS (4)
  - Dyspnoea [None]
  - Oxygen saturation decreased [None]
  - Quality of life decreased [None]
  - Back pain [None]
